FAERS Safety Report 5895690-0 (Version None)
Quarter: 2008Q3

REPORT INFORMATION
  Report Type: 
  Country: None (occurrence: None)
  Receive Date: 20080924
  Receipt Date: 20071015
  Transmission Date: 20090109
  Serious: No
  Sender: FDA-Public Use
  Company Number: US-BAYER-200713687BWH

PATIENT
  Age: 71 Year
  Sex: Male

DRUGS (4)
  1. CIPRO [Suspect]
     Indication: DRUG USE FOR UNKNOWN INDICATION
  2. CELEBREX [Concomitant]
  3. PROSED [Concomitant]
  4. SANCTURA [Concomitant]

REACTIONS (1)
  - DRUG USE FOR UNKNOWN INDICATION [None]
